FAERS Safety Report 11929724 (Version 2)
Quarter: 2016Q1

REPORT INFORMATION
  Report Type: Spontaneous
  Country: AT (occurrence: AT)
  Receive Date: 20160120
  Receipt Date: 20160128
  Transmission Date: 20160526
  Serious: Yes (Other)
  Sender: FDA-Public Use
  Company Number: AT-ACTAVIS-2016-00927

PATIENT
  Age: 53 Year
  Sex: Female

DRUGS (2)
  1. BISOPROLOL (UNKNOWN) [Suspect]
     Active Substance: BISOPROLOL
     Indication: HYPERTENSION
     Dosage: UNK
     Route: 065
  2. TIZANIDINE (UNKNOWN) [Suspect]
     Active Substance: TIZANIDINE
     Indication: INTERVERTEBRAL DISC PROTRUSION
     Dosage: 80 MG, DAILY
     Route: 065

REACTIONS (13)
  - Restlessness [Recovered/Resolved]
  - Hypertension [Recovered/Resolved]
  - Overdose [Unknown]
  - Tachycardia [Recovered/Resolved]
  - Vomiting [Recovered/Resolved]
  - Bradycardia [Unknown]
  - Drug abuse [Unknown]
  - Nausea [Recovered/Resolved]
  - Drug withdrawal syndrome [Recovered/Resolved]
  - Hypotension [Unknown]
  - Cold sweat [Recovered/Resolved]
  - Delirium [Recovered/Resolved]
  - Tremor [Recovered/Resolved]
